FAERS Safety Report 17464184 (Version 1)
Quarter: 2020Q1

REPORT INFORMATION
  Report Type: Spontaneous
  Country: US (occurrence: US)
  Receive Date: 20200226
  Receipt Date: 20200226
  Transmission Date: 20200409
  Serious: Yes (Death, Hospitalization)
  Sender: FDA-Public Use
  Company Number: US-AMERICAN REGENT INC-2020000505

PATIENT
  Age: 78 Year
  Sex: Male

DRUGS (1)
  1. LIDOCAINE HCL INJECTION, USP (0626-25) [Suspect]
     Active Substance: LIDOCAINE HYDROCHLORIDE
     Indication: PRODUCT USED FOR UNKNOWN INDICATION
     Dosage: UNK
     Route: 051
     Dates: start: 2018, end: 2018

REACTIONS (4)
  - Shock [Fatal]
  - Cardiac arrest [Fatal]
  - Cardiac tamponade [Fatal]
  - Wrong product administered [Fatal]

NARRATIVE: CASE EVENT DATE: 2018
